FAERS Safety Report 23361847 (Version 14)
Quarter: 2025Q2

REPORT INFORMATION
  Report Type: Spontaneous
  Country: US (occurrence: US)
  Receive Date: 20240103
  Receipt Date: 20250513
  Transmission Date: 20250716
  Serious: Yes (Other)
  Sender: PFIZER
  Company Number: US-PFIZER INC-PV202400000301

PATIENT
  Age: 79 Year
  Sex: Female
  Weight: 63.492 kg

DRUGS (8)
  1. IBRANCE [Suspect]
     Active Substance: PALBOCICLIB
     Indication: Breast cancer female
  2. IBRANCE [Suspect]
     Active Substance: PALBOCICLIB
     Route: 048
  3. IBRANCE [Suspect]
     Active Substance: PALBOCICLIB
     Dates: start: 20231124
  4. IBRANCE [Suspect]
     Active Substance: PALBOCICLIB
     Route: 048
     Dates: start: 202403
  5. IBRANCE [Suspect]
     Active Substance: PALBOCICLIB
     Route: 048
  6. IBRANCE [Suspect]
     Active Substance: PALBOCICLIB
     Route: 048
  7. LETROZOLE [Concomitant]
     Active Substance: LETROZOLE
     Dates: start: 20231116
  8. XGEVA [Concomitant]
     Active Substance: DENOSUMAB
     Dates: start: 20231120

REACTIONS (8)
  - Neutropenia [Recovered/Resolved]
  - Breast cancer female [Unknown]
  - Malignant neoplasm progression [Unknown]
  - Off label use [Unknown]
  - Hypoacusis [Not Recovered/Not Resolved]
  - Fatigue [Unknown]
  - White blood cell count decreased [Unknown]
  - Glycosylated haemoglobin decreased [Unknown]
